APPROVED DRUG PRODUCT: REPAGLINIDE AND METFORMIN HYDROCHLORIDE
Active Ingredient: METFORMIN HYDROCHLORIDE; REPAGLINIDE
Strength: 500MG;2MG
Dosage Form/Route: TABLET;ORAL
Application: A200624 | Product #002
Applicant: LUPIN LTD
Approved: Jul 15, 2015 | RLD: No | RS: No | Type: DISCN